FAERS Safety Report 19242428 (Version 1)
Quarter: 2021Q2

REPORT INFORMATION
  Report Type: Spontaneous
  Country: CN (occurrence: CN)
  Receive Date: 20210510
  Receipt Date: 20210510
  Transmission Date: 20210717
  Serious: Yes (Hospitalization, Other)
  Sender: FDA-Public Use
  Company Number: CN-UCBSA-2021021022

PATIENT
  Age: 14 Year
  Sex: Male
  Weight: 55 kg

DRUGS (4)
  1. LEVETIRACETAM. [Suspect]
     Active Substance: LEVETIRACETAM
     Dosage: 0.25 GRAM, 2X/DAY (BID)
     Route: 048
     Dates: start: 202103, end: 20210401
  2. LEVETIRACETAM. [Suspect]
     Active Substance: LEVETIRACETAM
     Indication: EPILEPSY
     Dosage: 0.25 GRAM, 2X/DAY (BID)
     Route: 048
     Dates: start: 20200824, end: 20210301
  3. LEVETIRACETAM. [Suspect]
     Active Substance: LEVETIRACETAM
     Dosage: 0.5 GRAM, 2X/DAY (BID)
     Route: 048
     Dates: start: 20210302, end: 20210315
  4. LAMICTAL [Concomitant]
     Active Substance: LAMOTRIGINE
     Indication: EPILEPSY
     Dosage: 75 MILLIGRAM, 2X/DAY (BID)
     Route: 048
     Dates: start: 20200824, end: 20210424

REACTIONS (4)
  - Rash [Recovered/Resolved]
  - Intentional product misuse [Unknown]
  - Generalised tonic-clonic seizure [Recovered/Resolved]
  - Pruritus [Recovering/Resolving]

NARRATIVE: CASE EVENT DATE: 202103
